FAERS Safety Report 21646662 (Version 2)
Quarter: 2022Q4

REPORT INFORMATION
  Report Type: Spontaneous
  Country: ES (occurrence: ES)
  Receive Date: 20221127
  Receipt Date: 20221207
  Transmission Date: 20230113
  Serious: Yes (Hospitalization)
  Sender: FDA-Public Use
  Company Number: ES-Accord-280344

PATIENT
  Age: 77 Year
  Sex: Male
  Weight: 85.7 kg

DRUGS (34)
  1. OXALIPLATIN [Suspect]
     Active Substance: OXALIPLATIN
     Indication: Product used for unknown indication
     Dosage: 1Q2W, UNIT DOSE: 100 MG/M2
     Route: 065
     Dates: start: 20220831
  2. EPCORITAMAB [Suspect]
     Active Substance: EPCORITAMAB
     Indication: Product used for unknown indication
     Dosage: FULL DOSE, SINGLE, UNIT DOSE: 48 MG
     Dates: start: 20220914
  3. EPCORITAMAB [Suspect]
     Active Substance: EPCORITAMAB
     Dosage: PRIMING DOSE, SINGLE, UNIT DOSE: 0.16 MG, DURATION 1 DAY
     Dates: start: 20220831, end: 20220831
  4. EPCORITAMAB [Suspect]
     Active Substance: EPCORITAMAB
     Dosage: INTERMEDIATE DOSE, SINGLE, 0.8 MG, DURATION 1 DAY
     Dates: start: 20220907, end: 20220907
  5. GEMCITABINE HYDROCHLORIDE [Suspect]
     Active Substance: GEMCITABINE HYDROCHLORIDE
     Indication: Product used for unknown indication
     Dosage: 1000 MG/M2, 1Q2W
     Dates: start: 20220831
  6. ONDANSETRON [Concomitant]
     Active Substance: ONDANSETRON
     Indication: Product used for unknown indication
     Dosage: DURATION 1 MONTH
     Dates: start: 202208, end: 20220919
  7. ONDANSETRON [Concomitant]
     Active Substance: ONDANSETRON
     Dosage: UNIT DOSE: 16 MG, DURATION1 DAY
     Dates: start: 20220914, end: 20220914
  8. ONDANSETRON [Concomitant]
     Active Substance: ONDANSETRON
     Dosage: UNIT DOSE: 16 MG, DURATION 1 MONTH
     Dates: start: 202208, end: 20220924
  9. LORAZEPAM [Concomitant]
     Active Substance: LORAZEPAM
     Indication: Product used for unknown indication
     Dosage: DURATION 5 DAY
     Dates: start: 20220920, end: 20220924
  10. PROTEIN [Concomitant]
     Active Substance: PROTEIN
     Indication: Product used for unknown indication
     Dosage: DURATION 4 DAYS
     Dates: start: 20220921, end: 20220924
  11. AMLODIPINE [Concomitant]
     Active Substance: AMLODIPINE BESYLATE
     Indication: Product used for unknown indication
     Dosage: DURATION 5 YEARS
     Dates: start: 2017, end: 20220906
  12. METHYLPREDNISOLONE [Concomitant]
     Active Substance: METHYLPREDNISOLONE
     Indication: Product used for unknown indication
     Dosage: DURATION 1 DAY
     Dates: start: 20220914, end: 20220914
  13. CEFEPIME [Concomitant]
     Active Substance: CEFEPIME HYDROCHLORIDE
     Indication: Product used for unknown indication
     Dosage: DURATION 3 DAYS
     Dates: start: 20220920, end: 20220922
  14. TRIMETHOPRIM [Concomitant]
     Active Substance: TRIMETHOPRIM
     Indication: Product used for unknown indication
     Dosage: DURATION 5 MONTHS
     Dates: start: 202204, end: 20220919
  15. ENOXAPARIN SODIUM [Concomitant]
     Active Substance: ENOXAPARIN SODIUM
     Indication: Product used for unknown indication
     Dosage: DURATION 6 DAYS
     Dates: start: 20220914, end: 20220919
  16. ACETAMINOPHEN [Concomitant]
     Active Substance: ACETAMINOPHEN
     Indication: Product used for unknown indication
     Dosage: UNIT DOSE: 1000 MG, DURATION 1 DAYS
     Dates: start: 20220914, end: 20220914
  17. ACETAMINOPHEN [Concomitant]
     Active Substance: ACETAMINOPHEN
     Dosage: DURATION 5 DAYS
     Dates: start: 20220920, end: 20220924
  18. BROMAZEPAM [Concomitant]
     Active Substance: BROMAZEPAM
     Indication: Product used for unknown indication
     Dosage: DURATION 4 YEARS
     Dates: start: 2018, end: 20220919
  19. DEXCHLORPHENIRAMINE MALEATE [Concomitant]
     Active Substance: DEXCHLORPHENIRAMINE MALEATE
     Indication: Product used for unknown indication
     Dosage: UNIT DOSE: 5 MG, DURATION 1 DAY
     Dates: start: 20220914, end: 20220914
  20. POTASSIUM CHLORIDE [Concomitant]
     Active Substance: POTASSIUM CHLORIDE
     Indication: Product used for unknown indication
     Dosage: DURATION 3 DAYS
     Dates: start: 20220922, end: 20220924
  21. BEMIPARIN SODIUM [Concomitant]
     Active Substance: BEMIPARIN SODIUM
     Indication: Product used for unknown indication
     Dosage: DURATION 5 DAYS
     Dates: start: 20220920, end: 20220924
  22. METOCLOPRAMIDE [Concomitant]
     Active Substance: METOCLOPRAMIDE
     Indication: Product used for unknown indication
     Dosage: DURATION 5 DAYS
     Dates: start: 20220920, end: 20220924
  23. SULFAMETHOXAZOLE [Concomitant]
     Active Substance: SULFAMETHOXAZOLE
     Indication: Product used for unknown indication
     Dosage: DURATION 5 MONTHS
     Dates: start: 202204, end: 20220919
  24. POLYETHYLENE GLYCOLS [Concomitant]
     Active Substance: POLYETHYLENE GLYCOLS
     Indication: Product used for unknown indication
     Dosage: DURATION 2 YEARS
     Dates: start: 20200526, end: 20220919
  25. CARTEOLOL [Concomitant]
     Active Substance: CARTEOLOL
     Indication: Product used for unknown indication
     Dosage: DURATION 5 YEARS
     Dates: start: 2017, end: 20220919
  26. ASPIRIN [Concomitant]
     Active Substance: ASPIRIN
     Indication: Product used for unknown indication
     Dosage: DURATION 1 YEAR
     Dates: start: 2021, end: 20220919
  27. LEUCOVORIN [Concomitant]
     Active Substance: LEUCOVORIN
     Indication: Product used for unknown indication
     Dosage: DURATION 5 MONTHS
     Dates: start: 202204, end: 20220919
  28. ACYCLOVIR [Concomitant]
     Active Substance: ACYCLOVIR
     Indication: Product used for unknown indication
     Dosage: DURATION 5 MONTHS
     Dates: start: 202204, end: 20220924
  29. LATANOPROST [Concomitant]
     Active Substance: LATANOPROST
     Indication: Product used for unknown indication
     Dosage: DURATION 5 MONTHS
     Dates: start: 202204, end: 20220919
  30. OMEPRAZOLE [Concomitant]
     Active Substance: OMEPRAZOLE
     Indication: Product used for unknown indication
     Dosage: DURATION 4 YEARS
     Dates: start: 2018, end: 20220919
  31. INDAPAMIDE [Concomitant]
     Active Substance: INDAPAMIDE
     Indication: Product used for unknown indication
     Dosage: DURATION 5 YEARS
     Dates: start: 2017, end: 20220919
  32. DEXAMETHASONE [Concomitant]
     Active Substance: DEXAMETHASONE
     Indication: Product used for unknown indication
     Dosage: 12 MG AND 16 MG
     Dates: start: 20220914
  33. DEXAMETHASONE [Concomitant]
     Active Substance: DEXAMETHASONE
     Dosage: 16 MG, DURATION 3 DAYS
     Dates: start: 20220915, end: 20220917
  34. ACTOCORTIN [Concomitant]
     Indication: Product used for unknown indication
     Dosage: DURATION 1 DAY
     Dates: start: 20220914, end: 20220914

REACTIONS (2)
  - Condition aggravated [Recovered/Resolved]
  - Cytokine release syndrome [Unknown]

NARRATIVE: CASE EVENT DATE: 20220918
